FAERS Safety Report 9710271 (Version 1)
Quarter: 2013Q4

REPORT INFORMATION
  Report Type: Spontaneous
  Country: US (occurrence: US)
  Receive Date: 20131126
  Receipt Date: 20131126
  Transmission Date: 20140711
  Serious: No
  Sender: FDA-Public Use
  Company Number: US-BRISTOL-MYERS SQUIBB COMPANY-18749499

PATIENT
  Age: 56 Year
  Sex: Female
  Weight: 103.4 kg

DRUGS (1)
  1. BYETTA PEN DISPOSABLE [Suspect]
     Indication: TYPE 2 DIABETES MELLITUS
     Dosage: THEN INCREASED TO 10MCG BID FOR ABOUT 3 YEARS

REACTIONS (1)
  - Weight decreased [Recovered/Resolved]
